FAERS Safety Report 21989909 (Version 2)
Quarter: 2023Q1

REPORT INFORMATION
  Report Type: Spontaneous
  Country: JP (occurrence: JP)
  Receive Date: 20230214
  Receipt Date: 20230216
  Transmission Date: 20230417
  Serious: Yes (Hospitalization, Other)
  Sender: FDA-Public Use
  Company Number: JP-PFIZER INC-PV202300026105

PATIENT
  Age: 73 Year
  Sex: Female

DRUGS (9)
  1. PAXLOVID [Interacting]
     Active Substance: NIRMATRELVIR\RITONAVIR
     Indication: COVID-19 treatment
     Dosage: UNK
     Route: 048
     Dates: start: 20220905
  2. TACROLIMUS [Interacting]
     Active Substance: TACROLIMUS
     Route: 048
  3. PROGRAF [Concomitant]
     Active Substance: TACROLIMUS
  4. CALONAL [Concomitant]
     Active Substance: ACETAMINOPHEN
  5. VONOPRAZAN FUMARATE [Concomitant]
     Active Substance: VONOPRAZAN FUMARATE
  6. ATOVAQUONE [Concomitant]
     Active Substance: ATOVAQUONE
  7. PREDONINE [Concomitant]
     Active Substance: PREDNISOLONE
  8. MYCOBUTIN [Concomitant]
     Active Substance: RIFABUTIN
  9. ISCOTIN [Concomitant]
     Active Substance: ISONIAZID

REACTIONS (3)
  - Acute kidney injury [Recovered/Resolved]
  - Drug interaction [Recovered/Resolved]
  - Drug level increased [Recovered/Resolved]
